FAERS Safety Report 16821233 (Version 4)
Quarter: 2019Q3

REPORT INFORMATION
  Report Type: Report from Study
  Country: US (occurrence: US)
  Receive Date: 20190918
  Receipt Date: 20190919
  Transmission Date: 20191005
  Serious: No
  Sender: FDA-Public Use
  Company Number: US-EISAI MEDICAL RESEARCH-EC-2019-062233

PATIENT
  Age: 38 Year
  Sex: Female
  Weight: 82.2 kg

DRUGS (18)
  1. METRONIDAZOLE. [Concomitant]
     Active Substance: METRONIDAZOLE
     Dates: start: 20190820, end: 20190910
  2. MAXIPIME [Concomitant]
     Active Substance: CEFEPIME HYDROCHLORIDE
     Dates: start: 20190826, end: 20190907
  3. COMPAZINE [Concomitant]
     Active Substance: PROCHLORPERAZINE MALEATE
     Dates: start: 20190121, end: 20190824
  4. PEMBROLIZUMAB. [Suspect]
     Active Substance: PEMBROLIZUMAB
     Indication: TRIPLE NEGATIVE BREAST CANCER
     Route: 041
     Dates: start: 20190820, end: 20190820
  5. LIDOCAINE (+) PRILOCAINE [Concomitant]
     Dates: start: 20181218
  6. BACLOFEN. [Concomitant]
     Active Substance: BACLOFEN
     Dates: start: 20190731
  7. GABAPENTIN. [Concomitant]
     Active Substance: GABAPENTIN
     Dates: start: 20190719
  8. TRAZODONE HYDROCHLORIDE. [Concomitant]
     Active Substance: TRAZODONE HYDROCHLORIDE
     Dates: start: 20190815
  9. HEPARIN [Concomitant]
     Active Substance: HEPARIN SODIUM
     Dates: start: 20190815
  10. ALPRAZOLAM. [Concomitant]
     Active Substance: ALPRAZOLAM
     Dates: start: 20190819
  11. OXYCODONE [Concomitant]
     Active Substance: OXYCODONE
     Dates: start: 20190820
  12. NALOXONE [Concomitant]
     Active Substance: NALOXONE
     Dates: start: 20190409
  13. LENVATINIB [Suspect]
     Active Substance: LENVATINIB
     Indication: TRIPLE NEGATIVE BREAST CANCER
     Route: 048
     Dates: start: 20190820
  14. LOVENOX [Concomitant]
     Active Substance: ENOXAPARIN SODIUM
     Dates: start: 20190825
  15. BUPROPION. [Concomitant]
     Active Substance: BUPROPION
     Dates: start: 20190815
  16. FENTANYL. [Concomitant]
     Active Substance: FENTANYL
     Dates: start: 20190820, end: 20190821
  17. FLAGYL [Concomitant]
     Active Substance: METRONIDAZOLE\METRONIDAZOLE HYDROCHLORIDE
     Dates: start: 20190825, end: 20190904
  18. SILVADENE [Concomitant]
     Active Substance: SILVER SULFADIAZINE
     Dates: start: 20190826

REACTIONS (2)
  - Skin infection [Not Recovered/Not Resolved]
  - Staphylococcal infection [Not Recovered/Not Resolved]

NARRATIVE: CASE EVENT DATE: 20190827
